FAERS Safety Report 6649287-5 (Version None)
Quarter: 2010Q1

REPORT INFORMATION
  Report Type: 
  Country: None (occurrence: None)
  Receive Date: 20100324
  Receipt Date: 20100317
  Transmission Date: 20100710
  Serious: Yes (Hospitalization, Other)
  Sender: FDA-Public Use
  Company Number: PHHO2010DE02916

PATIENT
  Sex: Male
  Weight: 72.1 kg

DRUGS (6)
  1. AFINITOR [Suspect]
     Indication: NEUROENDOCRINE TUMOUR
     Dosage: 10 MG
     Route: 048
     Dates: start: 20091222, end: 20100218
  2. AFINITOR [Suspect]
     Dosage: NO TREATMENT
     Dates: start: 20100219, end: 20100222
  3. AFINITOR [Suspect]
     Dosage: 10 MG
     Route: 048
     Dates: start: 20100223
  4. TORASEMIDE [Suspect]
     Indication: OEDEMA
     Dosage: 15 MG
     Route: 048
     Dates: start: 20100115, end: 20100129
  5. TORASEMIDE [Suspect]
     Dosage: 10 MG
     Route: 048
     Dates: start: 20100130, end: 20100207
  6. TORASEMIDE [Suspect]
     Dosage: 5 MG
     Route: 048
     Dates: start: 20100208

REACTIONS (12)
  - ACNE [None]
  - AGITATION [None]
  - BLOOD UREA INCREASED [None]
  - CATHETER PLACEMENT [None]
  - DERMATITIS [None]
  - DIALYSIS [None]
  - DIARRHOEA [None]
  - DISORIENTATION [None]
  - INFECTION [None]
  - OEDEMA [None]
  - OVERDOSE [None]
  - RENAL FAILURE ACUTE [None]
